FAERS Safety Report 17519787 (Version 2)
Quarter: 2020Q1

REPORT INFORMATION
  Report Type: Spontaneous
  Country: AU (occurrence: AU)
  Receive Date: 20200310
  Receipt Date: 20200320
  Transmission Date: 20200409
  Serious: Yes (Other)
  Sender: FDA-Public Use
  Company Number: AU-NOVOPROD-716607

PATIENT
  Age: 55 Year
  Sex: Male

DRUGS (4)
  1. NOVORAPID [Suspect]
     Active Substance: INSULIN ASPART
     Indication: TYPE 2 DIABETES MELLITUS
     Dosage: 22 IU, TID (WITH MEALS)
     Route: 065
  2. NOVORAPID [Suspect]
     Active Substance: INSULIN ASPART
     Dosage: 10-12 UNITS WITH MEALS
     Route: 065
  3. METFORMIN [Concomitant]
     Active Substance: METFORMIN HYDROCHLORIDE
     Indication: TYPE 2 DIABETES MELLITUS
     Dosage: UNK
     Route: 065
  4. LANTUS [Concomitant]
     Active Substance: INSULIN GLARGINE
     Indication: TYPE 2 DIABETES MELLITUS
     Dosage: 22 IU, QD (NOCTE)
     Route: 065

REACTIONS (2)
  - Diabetic ketoacidosis [Unknown]
  - Injection site atrophy [Not Recovered/Not Resolved]

NARRATIVE: CASE EVENT DATE: 201910
